FAERS Safety Report 10902323 (Version 1)
Quarter: 2015Q1

REPORT INFORMATION
  Report Type: Spontaneous
  Country: US (occurrence: US)
  Receive Date: 20150310
  Receipt Date: 20150310
  Transmission Date: 20150721
  Serious: Yes (Other)
  Sender: FDA-Public Use
  Company Number: US-BAYER-2015-031574

PATIENT
  Age: 90 Year
  Sex: Female
  Weight: 61 kg

DRUGS (3)
  1. SANDOSTATIN [Concomitant]
     Active Substance: OCTREOTIDE ACETATE
  2. ASPICOT [Concomitant]
     Active Substance: ASPIRIN
  3. ALKA-SELTZER HEARTBURN PLUS GAS RELIEFCHEWS TROPICAL PUNCH [Suspect]
     Active Substance: CALCIUM CARBONATE\DIMETHICONE
     Indication: DYSPEPSIA
     Dosage: 1 DF, PRN
     Route: 048
     Dates: start: 201502, end: 20150222

REACTIONS (2)
  - Swollen tongue [Unknown]
  - Glossitis [Not Recovered/Not Resolved]

NARRATIVE: CASE EVENT DATE: 20150216
